FAERS Safety Report 6719498-9 (Version None)
Quarter: 2010Q2

REPORT INFORMATION
  Report Type: 
  Country: None (occurrence: None)
  Receive Date: 20100510
  Receipt Date: 20100510
  Transmission Date: 20101027
  Serious: Yes (Other)
  Sender: FDA-Public Use
  Company Number: None

PATIENT
  Age: 61 Year
  Sex: Female
  Weight: 62.5964 kg

DRUGS (1)
  1. PRISTIQ [Suspect]
     Indication: MAJOR DEPRESSION
     Dosage: 1 DAILY PO
     Route: 048
     Dates: start: 20100416, end: 20100506

REACTIONS (16)
  - ANXIETY [None]
  - BLOOD CHOLESTEROL INCREASED [None]
  - BLOOD GLUCOSE INCREASED [None]
  - BLOOD PRESSURE INCREASED [None]
  - DYSGEUSIA [None]
  - EPISTAXIS [None]
  - GLOSSODYNIA [None]
  - HEADACHE [None]
  - INSOMNIA [None]
  - LOW DENSITY LIPOPROTEIN INCREASED [None]
  - NIGHT BLINDNESS [None]
  - PRODUCT COLOUR ISSUE [None]
  - PRODUCT FORMULATION ISSUE [None]
  - PRURITUS [None]
  - SWOLLEN TONGUE [None]
  - WEIGHT INCREASED [None]
